FAERS Safety Report 12996158 (Version 1)
Quarter: 2016Q4

REPORT INFORMATION
  Report Type: Spontaneous
  Country: AU (occurrence: AU)
  Receive Date: 20161203
  Receipt Date: 20161203
  Transmission Date: 20170207
  Serious: Yes (Death, Other)
  Sender: FDA-Public Use
  Company Number: AU-ASTRAZENECA-2012SE24757

PATIENT
  Age: 25078 Day
  Sex: Male

DRUGS (6)
  1. ANDROCUR [Suspect]
     Active Substance: CYPROTERONE ACETATE
     Route: 065
  2. REMIFEMIN [Suspect]
     Active Substance: BLACK COHOSH
     Route: 065
  3. CHEMOTHERAPY [Suspect]
     Active Substance: UNSPECIFIED INGREDIENT
     Route: 065
     Dates: start: 20140115
  4. COSUDEX [Suspect]
     Active Substance: BICALUTAMIDE
     Route: 048
     Dates: start: 20101101, end: 2013
  5. ZOLADEX [Suspect]
     Active Substance: GOSERELIN ACETATE
     Indication: PROSTATE CANCER
     Route: 058
     Dates: start: 20101101
  6. PAIN MEDICATIONS (MORPHINE AND THE LIKE) [Suspect]
     Active Substance: MORPHINE
     Route: 065

REACTIONS (6)
  - Formication [Not Recovered/Not Resolved]
  - Memory impairment [Unknown]
  - Feeling abnormal [Not Recovered/Not Resolved]
  - Malignant neoplasm progression [Unknown]
  - Hot flush [Not Recovered/Not Resolved]
  - Oncologic complication [Fatal]

NARRATIVE: CASE EVENT DATE: 20101101
